FAERS Safety Report 23223623 (Version 1)
Quarter: 2023Q4

REPORT INFORMATION
  Report Type: Spontaneous
  Country: CN (occurrence: CN)
  Receive Date: 20231124
  Receipt Date: 20231124
  Transmission Date: 20240110
  Serious: Yes (Hospitalization, Other)
  Sender: FDA-Public Use
  Company Number: None

PATIENT
  Age: 33 Year
  Sex: Male
  Weight: 70 kg

DRUGS (1)
  1. SUPRANE [Suspect]
     Active Substance: DESFLURANE
     Indication: Induction of anaesthesia
     Dosage: ONCE AT AN UNSPECIFIED DOSE (DOSAGE FORM: INJECTION) (INHALATION)
     Route: 055
     Dates: start: 20231115, end: 20231115

REACTIONS (4)
  - Cardiovascular disorder [Unknown]
  - Hyperthermia malignant [Recovering/Resolving]
  - Body temperature increased [Recovered/Resolved]
  - Heart rate increased [Recovered/Resolved]

NARRATIVE: CASE EVENT DATE: 20231115
